FAERS Safety Report 8818926 (Version 1)
Quarter: 2012Q4

REPORT INFORMATION
  Report Type: 
  Country: MX (occurrence: MX)
  Receive Date: 20121001
  Receipt Date: 20121001
  Transmission Date: 20130627
  Serious: Yes (Hospitalization, Other)
  Sender: FDA-Public Use
  Company Number: PHHY2012MX084695

PATIENT
  Age: 41 Year
  Sex: Female

DRUGS (5)
  1. CO-DIOVAN [Suspect]
     Indication: HYPERTENSION
     Dosage: 2 tablets (160/12.5 mg) per day
     Dates: start: 20100318
  2. EQUILIN [Concomitant]
     Dosage: UNK UKN, UNK
  3. LYRICA [Concomitant]
     Dosage: UNK UKN, UNK
  4. INSULIN [Concomitant]
     Dosage: UNK UKN, UNK
  5. TOTELLE [Concomitant]
     Dosage: UNK UKN, UNK

REACTIONS (6)
  - Typhoid fever [Unknown]
  - Chills [Unknown]
  - Pyrexia [Unknown]
  - Abdominal pain [Unknown]
  - Kidney infection [Unknown]
  - Hypertension [Unknown]
